FAERS Safety Report 4615389-8 (Version None)
Quarter: 2005Q1

REPORT INFORMATION
  Report Type: 
  Country: None (occurrence: None)
  Receive Date: 20050317
  Receipt Date: 20050301
  Transmission Date: 20050727
  Serious: Yes (Other)
  Sender: FDA-Public Use
  Company Number: DSA_60472_2005

PATIENT
  Age: 8 Year
  Sex: Female

DRUGS (7)
  1. DIAPP [Suspect]
     Indication: EPILEPSY
     Dosage: 6 MG QDAY RC
  2. RIZABEN [Suspect]
     Indication: CONVULSION
     Dosage: 125 MG QDAY PO
     Route: 048
  3. MYSTAN AZWELL [Suspect]
     Indication: EPILEPSY
     Dosage: 8 MG QDAY PO
     Route: 048
  4. MYSTAN AZWELL [Suspect]
     Indication: EPILEPSY
     Dosage: 10 MG DAILY PO
     Route: 048
  5. EXCEGRAN [Suspect]
     Indication: EPILEPSY
     Dosage: 140 MG QDAY PO
     Route: 048
  6. HYSERENIN [Suspect]
     Indication: EPILEPSY
     Dosage: 850 MG QDAY PO
     Route: 048
  7. LEUPLIN [Concomitant]

REACTIONS (5)
  - GINGIVAL HYPERPLASIA [None]
  - HAMARTOMA [None]
  - MUCOUS MEMBRANE DISORDER [None]
  - ORAL MUCOSAL DISORDER [None]
  - TOOTH DEVELOPMENT DISORDER [None]
